FAERS Safety Report 7008522-4 (Version None)
Quarter: 2010Q3

REPORT INFORMATION
  Report Type: 
  Country: None (occurrence: None)
  Receive Date: 20100922
  Receipt Date: 20100917
  Transmission Date: 20110219
  Serious: No
  Sender: FDA-Public Use
  Company Number: US-PFIZER INC-2010118158

PATIENT
  Sex: Female
  Weight: 46 kg

DRUGS (6)
  1. CHANTIX [Suspect]
     Indication: SMOKING CESSATION THERAPY
     Dosage: 0.5MG, DAILY
     Dates: start: 20100917
  2. CHANTIX [Suspect]
     Dosage: 1 MG, 2X/DAY
     Route: 048
     Dates: start: 20100831
  3. TRIMETHOPRIM + SULFAMETHOXAZOLE [Suspect]
     Indication: URINARY TRACT INFECTION
     Dosage: UNK
     Route: 048
  4. BUPROPION [Suspect]
     Indication: DEPRESSION
     Dosage: UNK MG, 2X/DAY
     Dates: start: 20100101
  5. FLUOXETINE HYDROCHLORIDE [Concomitant]
     Indication: DEPRESSION
     Dosage: 60 MG, DAILY
  6. CIPROFLOXACIN [Concomitant]
     Indication: URINARY TRACT INFECTION
     Dosage: 500 MG, 2X/DAY

REACTIONS (6)
  - DRUG INEFFECTIVE [None]
  - DYSGEUSIA [None]
  - HOT FLUSH [None]
  - MUSCULAR WEAKNESS [None]
  - PYREXIA [None]
  - TREMOR [None]
